FAERS Safety Report 22630105 (Version 5)
Quarter: 2024Q2

REPORT INFORMATION
  Report Type: Spontaneous
  Country: MT (occurrence: MT)
  Receive Date: 20230622
  Receipt Date: 20240426
  Transmission Date: 20240716
  Serious: Yes (Other)
  Sender: FDA-Public Use
  Company Number: MT-MLMSERVICE-20230612-4341557-1

PATIENT
  Age: 6 Decade
  Sex: Male

DRUGS (4)
  1. DEXAMETHASONE SODIUM PHOSPHATE [Suspect]
     Active Substance: DEXAMETHASONE PHOSPHATE\DEXAMETHASONE SODIUM PHOSPHATE
     Indication: Plasma cell myeloma
     Dosage: TOTAL OF SIX CYCLES
  2. BORTEZOMIB [Suspect]
     Active Substance: BORTEZOMIB
     Indication: Plasma cell myeloma
     Dosage: TOTAL OF SIX CYCLES
  3. BORTEZOMIB [Suspect]
     Active Substance: BORTEZOMIB
     Dosage: MAINTENANCE DOSE
  4. CYCLOPHOSPHAMIDE [Suspect]
     Active Substance: CYCLOPHOSPHAMIDE
     Indication: Plasma cell myeloma
     Dosage: TOTAL OF SIX CYCLES

REACTIONS (2)
  - Second primary malignancy [Recovered/Resolved]
  - Kaposi^s sarcoma [Recovered/Resolved]
